FAERS Safety Report 6666252-2 (Version None)
Quarter: 2010Q1

REPORT INFORMATION
  Report Type: 
  Country: None (occurrence: None)
  Receive Date: 20100331
  Receipt Date: 20100316
  Transmission Date: 20100710
  Serious: Yes (Death, Life-Threatening, Hospitalization)
  Sender: FDA-Public Use
  Company Number: 2010000253

PATIENT
  Age: 78 Year
  Sex: Male

DRUGS (14)
  1. ERLOTINIB (ERLOTINIB) (TABLET) (ERLOTINIB) [Suspect]
     Indication: NON-SMALL CELL LUNG CANCER
     Dosage: (100 MG),ORAL
     Route: 048
     Dates: start: 20091228, end: 20100110
  2. GEMCITABINE [Suspect]
     Indication: NON-SMALL CELL LUNG CANCER
     Dosage: (2000 MG,Q1W),INTRAVENOUS
     Route: 042
     Dates: start: 20091228
  3. LISINOPRIL [Concomitant]
  4. LEVOTHYROXINE SODIUM [Concomitant]
  5. SIMVASTATIN [Concomitant]
  6. WARFARIN SODIUM [Concomitant]
  7. ASPIRIN [Concomitant]
  8. FUROSEMIDE [Concomitant]
  9. LANTUS [Concomitant]
  10. DIGOXIN [Concomitant]
  11. HUMULIN N [Concomitant]
  12. MAGNESIUM (MAGNESIUM) [Concomitant]
  13. DILTIAZEM [Concomitant]
  14. COMPAZINE [Concomitant]

REACTIONS (3)
  - INTESTINAL OBSTRUCTION [None]
  - MYOCARDIAL INFARCTION [None]
  - RESPIRATORY FAILURE [None]
